FAERS Safety Report 4622282-3 (Version None)
Quarter: 2005Q1

REPORT INFORMATION
  Report Type: 
  Country: None (occurrence: None)
  Receive Date: 20050328
  Receipt Date: 20050318
  Transmission Date: 20050727
  Serious: Yes (Life-Threatening, Hospitalization)
  Sender: FDA-Public Use
  Company Number: 2005-03-1341

PATIENT
  Age: 53 Year
  Sex: Female
  Weight: 68 kg

DRUGS (1)
  1. AERIUS TABLETS (DESLORATADINE)  'LIKE CLARINEX' [Suspect]
     Indication: ALLERGIC COUGH
     Dosage: 5 MG QD ORAL
     Route: 048
     Dates: start: 20050215, end: 20050201

REACTIONS (3)
  - GENERAL PHYSICAL HEALTH DETERIORATION [None]
  - HYPERTENSION [None]
  - SENSE OF OPPRESSION [None]
